FAERS Safety Report 18406863 (Version 1)
Quarter: 2020Q4

REPORT INFORMATION
  Report Type: Spontaneous
  Country: PL (occurrence: PL)
  Receive Date: 20201020
  Receipt Date: 20201020
  Transmission Date: 20210114
  Serious: Yes (Other)
  Sender: FDA-Public Use
  Company Number: PL-ELI_LILLY_AND_COMPANY-PL202010004326

PATIENT
  Age: 44 Year
  Sex: Female
  Weight: 93 kg

DRUGS (3)
  1. METFORMIN [Concomitant]
     Active Substance: METFORMIN HYDROCHLORIDE
     Indication: PRODUCT USED FOR UNKNOWN INDICATION
     Dosage: 1000 MG, TID
     Route: 048
     Dates: start: 201807
  2. TRULICITY [Suspect]
     Active Substance: DULAGLUTIDE
     Indication: OBESITY
  3. TRULICITY [Suspect]
     Active Substance: DULAGLUTIDE
     Indication: TYPE 2 DIABETES MELLITUS
     Dosage: 1.5 MG, WEEKLY (1/W)
     Route: 058
     Dates: start: 201809, end: 202008

REACTIONS (1)
  - Neuroendocrine carcinoma [Recovering/Resolving]

NARRATIVE: CASE EVENT DATE: 202008
